FAERS Safety Report 9831606 (Version 2)
Quarter: 2014Q1

REPORT INFORMATION
  Report Type: Spontaneous
  Country: US (occurrence: US)
  Receive Date: 20140121
  Receipt Date: 20140303
  Transmission Date: 20141002
  Serious: No
  Sender: FDA-Public Use
  Company Number: US-PFIZER INC-2014015862

PATIENT
  Age: 73 Year
  Sex: Female
  Weight: 76.19 kg

DRUGS (13)
  1. LYRICA [Suspect]
     Indication: HERPES ZOSTER
     Dosage: 150 MG, 2X/DAY
     Route: 048
  2. LYRICA [Suspect]
     Indication: PAIN
     Dosage: 150 MG, 1X/DAY
     Route: 048
     Dates: start: 20140112, end: 20140114
  3. LYRICA [Suspect]
     Indication: NEUROPATHY PERIPHERAL
  4. METHIMAZOLE [Concomitant]
     Indication: THYROID DISORDER
     Dosage: 5 MG, 1X/DAY
  5. PRAVASTATIN [Concomitant]
     Dosage: 80 MG, 1X/DAY
  6. LISINOPRIL [Concomitant]
     Dosage: 10 MG, 1X/DAY
  7. METOPROLOL [Concomitant]
     Dosage: 100MG AS 2 TABLETS OF 50MG TWO TIMES A DAY50 MG, 2X/DAY
     Dates: start: 201401
  8. METOPROLOL [Concomitant]
     Dosage: 100 MG, 2X/DAY
  9. FAMOTIDINE [Concomitant]
     Dosage: 20 MG, 2X/DAY
  10. CALCIUM + VIT D [Concomitant]
     Dosage: 2X/DAY
  11. FUROSEMIDE [Concomitant]
     Dosage: 20 MG, AS NEEDED
  12. HUMULIN N [Concomitant]
     Indication: DIABETES MELLITUS
     Dosage: 25 IU, 1X/DAY
  13. HUMULIN R [Concomitant]
     Indication: DIABETES MELLITUS
     Dosage: INSULIN AMOUNT CHANGES DEPENDING ON BLOOD TEST

REACTIONS (5)
  - Pain [Not Recovered/Not Resolved]
  - Paraesthesia [Unknown]
  - Burning sensation [Unknown]
  - Neuropathy peripheral [Unknown]
  - Blood test abnormal [Unknown]
